FAERS Safety Report 23585984 (Version 1)
Quarter: 2024Q1

REPORT INFORMATION
  Report Type: Spontaneous
  Country: FR (occurrence: FR)
  Receive Date: 20240301
  Receipt Date: 20240301
  Transmission Date: 20240410
  Serious: Yes (Other)
  Sender: FDA-Public Use
  Company Number: None

PATIENT
  Age: 81 Year
  Sex: Male

DRUGS (4)
  1. LEVOFLOXACIN [Suspect]
     Active Substance: LEVOFLOXACIN
     Indication: Pneumonia
     Dosage: 500MG 2*/DAY
     Route: 065
     Dates: start: 20231227, end: 20231230
  2. FUROSEMIDE [Suspect]
     Active Substance: FUROSEMIDE
     Indication: Pneumonia
     Dosage: 80 MG AT 6 P.M. AND 80 MG AT 6 A.M.
     Route: 042
     Dates: start: 20231226, end: 20231227
  3. AUGMENTIN [Suspect]
     Active Substance: AMOXICILLIN\CLAVULANATE POTASSIUM
     Indication: Pneumonia
     Dosage: 1 G AT 6 P.M. AND 1 G AT 6 A.M.
     Route: 042
     Dates: start: 20231226, end: 20231227
  4. TAFAMIDIS MEGLUMINE [Concomitant]
     Active Substance: TAFAMIDIS MEGLUMINE
     Indication: Cardiac amyloidosis
     Route: 065

REACTIONS (2)
  - Confusional state [Not Recovered/Not Resolved]
  - Rash macular [Recovered/Resolved]

NARRATIVE: CASE EVENT DATE: 20231228
